FAERS Safety Report 7525899-1 (Version None)
Quarter: 2011Q2

REPORT INFORMATION
  Report Type: 
  Country: None (occurrence: None)
  Receive Date: 20110606
  Receipt Date: 20110526
  Transmission Date: 20111010
  Serious: Yes (Hospitalization)
  Sender: FDA-Public Use
  Company Number: B0702423A

PATIENT
  Sex: Female

DRUGS (6)
  1. LAMICTAL [Suspect]
     Indication: EPILEPSY
     Dosage: 50MG PER DAY
     Route: 048
     Dates: start: 20110208, end: 20110218
  2. PHENYTOIN [Concomitant]
  3. PHENOBAL [Concomitant]
     Indication: EPILEPSY
     Dosage: 60MG PER DAY
     Route: 048
     Dates: start: 20110208, end: 20110218
  4. ZONISAMIDE [Concomitant]
  5. VALPROATE SODIUM [Concomitant]
  6. GABAPENTIN [Concomitant]

REACTIONS (6)
  - THROMBOCYTOPENIA [None]
  - WHITE BLOOD CELL COUNT DECREASED [None]
  - LIVER DISORDER [None]
  - HEPATIC FUNCTION ABNORMAL [None]
  - LEUKOPENIA [None]
  - PYREXIA [None]
